FAERS Safety Report 24457851 (Version 1)
Quarter: 2024Q4

REPORT INFORMATION
  Report Type: Spontaneous
  Country: CN (occurrence: CN)
  Receive Date: 20241018
  Receipt Date: 20241018
  Transmission Date: 20250114
  Serious: No
  Sender: ROCHE
  Company Number: CN-BoehringerIngelheim-2023-BI-264492

PATIENT
  Age: 63 Year
  Sex: Female
  Weight: 63.0 kg

DRUGS (3)
  1. ALTEPLASE [Suspect]
     Active Substance: ALTEPLASE
     Indication: Thrombolysis
     Route: 040
     Dates: start: 20230914
  2. ALTEPLASE [Suspect]
     Active Substance: ALTEPLASE
     Route: 042
     Dates: end: 20230914
  3. EDARAVONE [Concomitant]
     Active Substance: EDARAVONE
     Indication: Cerebral infarction
     Route: 042
     Dates: start: 20230914, end: 20230925

REACTIONS (1)
  - Swollen tongue [Recovered/Resolved]

NARRATIVE: CASE EVENT DATE: 20230914
